FAERS Safety Report 10056786 (Version 2)
Quarter: 2014Q2

REPORT INFORMATION
  Report Type: Report from Study
  Country: RU (occurrence: RU)
  Receive Date: 20140403
  Receipt Date: 20140403
  Transmission Date: 20141212
  Serious: Yes (Death)
  Sender: FDA-Public Use
  Company Number: RU-ABBVIE-13P-251-1061682-00

PATIENT
  Age: 61 Year
  Sex: Male

DRUGS (1)
  1. LUCRIN DEPOT [Suspect]
     Indication: PROSTATE CANCER
     Dates: start: 20120131, end: 20120810

REACTIONS (1)
  - Disease progression [Fatal]
